FAERS Safety Report 7721192-2 (Version None)
Quarter: 2011Q3

REPORT INFORMATION
  Report Type: 
  Country: None (occurrence: None)
  Receive Date: 20110825
  Receipt Date: 20110815
  Transmission Date: 20111222
  Serious: Yes (Hospitalization)
  Sender: FDA-Public Use
  Company Number: 15183114

PATIENT
  Age: 59 Year
  Sex: Male

DRUGS (4)
  1. PLACEBO [Suspect]
     Indication: EMBOLISM
     Dates: start: 20100513
  2. APIXABAN [Suspect]
     Indication: EMBOLISM
     Dosage: 20 MILLIGRAM 1 DAY ORAL
     Route: 048
     Dates: start: 20100513
  3. ENOXAPARIN SODIUM [Suspect]
     Dosage: 100 MILLIGRAM 1 DAY SC
     Route: 058
     Dates: start: 20100513
  4. WARFARIN SODIUM [Suspect]
     Indication: EMBOLISM
     Dosage: 6 MILLIGRAM 1 DAY ORAL
     Route: 048
     Dates: start: 20100513

REACTIONS (2)
  - SCIATICA [None]
  - INTERVERTEBRAL DISC PROTRUSION [None]
